FAERS Safety Report 18837985 (Version 1)
Quarter: 2021Q1

REPORT INFORMATION
  Report Type: Other
  Country: JP (occurrence: JP)
  Receive Date: 20210203
  Receipt Date: 20210203
  Transmission Date: 20210419
  Serious: Yes (Other)
  Sender: FDA-Public Use
  Company Number: JP-ROCHE-2759805

PATIENT

DRUGS (3)
  1. ATEZOLIZUMAB. [Suspect]
     Active Substance: ATEZOLIZUMAB
     Indication: NON-SMALL CELL LUNG CANCER
     Route: 065
  2. PEMBROLIZUMAB. [Suspect]
     Active Substance: PEMBROLIZUMAB
     Indication: NON-SMALL CELL LUNG CANCER
     Route: 065
  3. NIVOLUMAB [Suspect]
     Active Substance: NIVOLUMAB
     Indication: NON-SMALL CELL LUNG CANCER
     Route: 065

REACTIONS (13)
  - Hypophysitis [Unknown]
  - Arthralgia [Unknown]
  - Disease progression [Unknown]
  - Colitis [Unknown]
  - Hepatitis [Unknown]
  - Pneumonitis [Unknown]
  - Thyroiditis [Unknown]
  - Pruritus [Unknown]
  - Hypothyroidism [Unknown]
  - Rash [Unknown]
  - Drug ineffective [Unknown]
  - Nephritis [Unknown]
  - Diarrhoea [Unknown]
